FAERS Safety Report 6179958-9 (Version None)
Quarter: 2009Q2

REPORT INFORMATION
  Report Type: 
  Country: None (occurrence: None)
  Receive Date: 20090505
  Receipt Date: 20090403
  Transmission Date: 20091009
  Serious: No
  Sender: FDA-Public Use
  Company Number: US-ALEXION-A200900252

PATIENT
  Sex: Male

DRUGS (1)
  1. SOLIRIS [Suspect]
     Dosage: UNK

REACTIONS (1)
  - ABDOMINAL PAIN UPPER [None]
